FAERS Safety Report 4848499-0 (Version None)
Quarter: 2005Q4

REPORT INFORMATION
  Report Type: 
  Country: None (occurrence: None)
  Receive Date: 20051208
  Receipt Date: 20051129
  Transmission Date: 20060501
  Serious: Yes (Other)
  Sender: FDA-Public Use
  Company Number: FR-ABBOTT-05P-056-0318558-00

PATIENT
  Age: 80 Year
  Sex: Female

DRUGS (1)
  1. LIPANTHYL 160 LM TABLETS [Suspect]
     Indication: DRUG USE FOR UNKNOWN INDICATION
     Route: 065
     Dates: start: 19980101

REACTIONS (5)
  - ANOREXIA [None]
  - ARTHRODESIS [None]
  - ASTHENIA [None]
  - COUGH [None]
  - INSOMNIA [None]
